FAERS Safety Report 4678398-9 (Version None)
Quarter: 2005Q2

REPORT INFORMATION
  Report Type: 
  Country: None (occurrence: None)
  Receive Date: 20050527
  Receipt Date: 20050513
  Transmission Date: 20051028
  Serious: Yes (Hospitalization)
  Sender: FDA-Public Use
  Company Number: 8010594

PATIENT
  Age: 47 Year
  Sex: Male

DRUGS (3)
  1. KEPPRA [Suspect]
     Indication: GRAND MAL CONVULSION
     Dosage: 500 MG 2/D PO
     Route: 048
     Dates: start: 20050301, end: 20050501
  2. KEPPRA [Suspect]
     Indication: GRAND MAL CONVULSION
     Dosage: 1500 MG 2/D  PO
     Route: 048
     Dates: start: 20050501
  3. PSEUDOEPHEDRINE HCL [Suspect]
     Indication: SEASONAL ALLERGY
     Dosage: PRN PO
     Route: 048
     Dates: start: 20050401, end: 20050506

REACTIONS (2)
  - CONDITION AGGRAVATED [None]
  - GRAND MAL CONVULSION [None]
